FAERS Safety Report 23920170 (Version 1)
Quarter: 2024Q2

REPORT INFORMATION
  Report Type: Spontaneous
  Country: US (occurrence: None)
  Receive Date: 20240530
  Receipt Date: 20240530
  Transmission Date: 20240715
  Serious: Yes (Hospitalization)
  Sender: FDA-Public Use
  Company Number: None

PATIENT
  Sex: Female
  Weight: 83 kg

DRUGS (2)
  1. CARBOPLATIN [Suspect]
     Active Substance: CARBOPLATIN
     Dates: end: 20240506
  2. PACLITAXEL PROTEIN-BOUND PARTICLES [Suspect]
     Active Substance: PACLITAXEL PROTEIN-BOUND PARTICLES
     Dates: end: 20240506

REACTIONS (8)
  - Asthenia [None]
  - Malaise [None]
  - Nausea [None]
  - Vomiting [None]
  - Hypophagia [None]
  - Neutropenia [None]
  - Headache [None]
  - Erythema [None]

NARRATIVE: CASE EVENT DATE: 20240514
